FAERS Safety Report 17069072 (Version 1)
Quarter: 2019Q4

REPORT INFORMATION
  Report Type: Report from Study
  Country: US (occurrence: US)
  Receive Date: 20191124
  Receipt Date: 20191124
  Transmission Date: 20200122
  Serious: Yes (Hospitalization, Other)
  Sender: FDA-Public Use
  Company Number: US-BRISTOL-MYERS SQUIBB COMPANY-BMS-2019-110270

PATIENT
  Age: 62 Year
  Sex: Female
  Weight: 51.26 kg

DRUGS (1)
  1. NIVOLUMAB [Suspect]
     Active Substance: NIVOLUMAB
     Indication: NON-SMALL CELL LUNG CANCER
     Dosage: UNK, Q2WK
     Route: 065
     Dates: start: 20191105

REACTIONS (2)
  - Carbon dioxide increased [Unknown]
  - Aspiration [Unknown]

NARRATIVE: CASE EVENT DATE: 20191106
